FAERS Safety Report 14755122 (Version 2)
Quarter: 2018Q2

REPORT INFORMATION
  Report Type: Spontaneous
  Country: US (occurrence: US)
  Receive Date: 20180413
  Receipt Date: 20180504
  Transmission Date: 20180711
  Serious: Yes (Death, Other)
  Sender: FDA-Public Use
  Company Number: US-ROCHE-2102371

PATIENT
  Age: 75 Year
  Sex: Male
  Weight: 70.82 kg

DRUGS (1)
  1. CELLCEPT [Suspect]
     Active Substance: MYCOPHENOLATE MOFETIL\MYCOPHENOLATE MOFETIL HYDROCHLORIDE
     Indication: AUTOIMMUNE DISORDER
     Dosage: TAKE 3 TABLETS  ONGOING: NO
     Route: 048
     Dates: start: 2009

REACTIONS (9)
  - Bone cancer metastatic [Unknown]
  - Feeling abnormal [Unknown]
  - Prostate cancer metastatic [Unknown]
  - Sepsis [Unknown]
  - Malaise [Unknown]
  - Intentional product use issue [Unknown]
  - Death [Fatal]
  - Pain [Unknown]
  - Off label use [Unknown]

NARRATIVE: CASE EVENT DATE: 2009
